FAERS Safety Report 8932833 (Version 1)
Quarter: 2012Q4

REPORT INFORMATION
  Report Type: Spontaneous
  Country: US (occurrence: None)
  Receive Date: 20121127
  Receipt Date: 20121127
  Transmission Date: 20130627
  Serious: Yes (Other)
  Sender: FDA-Public Use
  Company Number: None

PATIENT
  Age: 76 Year
  Sex: Female
  Weight: 63.5 kg

DRUGS (1)
  1. PRAVASTATIN [Suspect]
     Indication: CHOLESTEROL HIGH
     Route: 048
     Dates: start: 20110429, end: 20121030

REACTIONS (4)
  - Appendicitis perforated [None]
  - Cyst [None]
  - Liver disorder [None]
  - Muscle injury [None]
